FAERS Safety Report 6485353-5 (Version None)
Quarter: 2009Q4

REPORT INFORMATION
  Report Type: 
  Country: None (occurrence: None)
  Receive Date: 20091203
  Receipt Date: 20091118
  Transmission Date: 20100525
  Serious: Yes (Disabling)
  Sender: FDA-Public Use
  Company Number: GB-DEXPHARM-20091994

PATIENT
  Age: 55 Year
  Sex: Female

DRUGS (1)
  1. CHLORAPREP [Suspect]
     Route: 003
     Dates: start: 20070508

REACTIONS (6)
  - FATIGUE [None]
  - FEELING ABNORMAL [None]
  - HEADACHE [None]
  - NAUSEA [None]
  - OROPHARYNGEAL PAIN [None]
  - SYNCOPE [None]
